FAERS Safety Report 10055803 (Version 2)
Quarter: 2014Q2

REPORT INFORMATION
  Report Type: Spontaneous
  Country: BR (occurrence: BR)
  Receive Date: 20140403
  Receipt Date: 20140429
  Transmission Date: 20141212
  Serious: Yes (Other)
  Sender: FDA-Public Use
  Company Number: BR-SA-2014SA037339

PATIENT
  Age: 67 Year
  Sex: Female
  Weight: 73 kg

DRUGS (4)
  1. LANTUS [Suspect]
     Indication: TYPE 2 DIABETES MELLITUS
     Route: 065
     Dates: start: 2013
  2. CLIKSTAR [Concomitant]
     Indication: DEVICE THERAPY
  3. JANUVIA [Concomitant]
     Indication: TYPE 2 DIABETES MELLITUS
  4. DEVICE NOS [Concomitant]
     Indication: PARAESTHESIA

REACTIONS (6)
  - Deafness [Recovered/Resolved]
  - Asphyxia [Recovered/Resolved]
  - Nasopharyngitis [Recovered/Resolved]
  - Productive cough [Recovered/Resolved]
  - Lacrimation increased [Recovered/Resolved]
  - Ear discomfort [Recovered/Resolved]
